FAERS Safety Report 8340454-1 (Version None)
Quarter: 2012Q2

REPORT INFORMATION
  Report Type: 
  Country: None (occurrence: None)
  Receive Date: 20120507
  Receipt Date: 20120426
  Transmission Date: 20120825
  Serious: No
  Sender: FDA-Public Use
  Company Number: US-BAYER-2012-043739

PATIENT
  Sex: Male

DRUGS (2)
  1. NAPROXEN SODIUM [Suspect]
     Dosage: 2 U, QD
     Route: 048
     Dates: start: 20120424
  2. PAXIL [Concomitant]

REACTIONS (1)
  - ANXIETY [None]
